FAERS Safety Report 25768422 (Version 1)
Quarter: 2025Q3

REPORT INFORMATION
  Report Type: Spontaneous
  Country: US (occurrence: US)
  Receive Date: 20250905
  Receipt Date: 20250905
  Transmission Date: 20251021
  Serious: No
  Sender: DOMPE FARMACEUTICI
  Company Number: US-FARMAPROD-202506-2164

PATIENT
  Sex: Female
  Weight: 69.9 kg

DRUGS (13)
  1. OXERVATE [Suspect]
     Active Substance: CENEGERMIN-BKBJ
     Indication: Neurotrophic keratopathy
     Route: 047
     Dates: start: 20250602
  2. ROSUVASTATIN CALCIUM [Concomitant]
     Active Substance: ROSUVASTATIN CALCIUM
  3. MIRTAZAPINE [Concomitant]
     Active Substance: MIRTAZAPINE
  4. WELLBUTRIN SR [Concomitant]
     Active Substance: BUPROPION HYDROCHLORIDE
  5. ALIGN [Concomitant]
     Active Substance: BIFIDOBACTERIUM LONGUM SUBSP. INFANTIS
  6. MINERALS\VITAMINS [Concomitant]
     Active Substance: MINERALS\VITAMINS
  7. ZETIA [Concomitant]
     Active Substance: EZETIMIBE
  8. OMEPRAZOLE [Concomitant]
     Active Substance: OMEPRAZOLE
  9. METOPROLOL SUCCINATE [Concomitant]
     Active Substance: METOPROLOL SUCCINATE
  10. LASIX [Concomitant]
     Active Substance: FUROSEMIDE
  11. ASPIRIN [Concomitant]
     Active Substance: ASPIRIN
  12. ELIQUIS [Concomitant]
     Active Substance: APIXABAN
  13. YUFLYMA(CF) [Concomitant]

REACTIONS (2)
  - Photophobia [Unknown]
  - Headache [Unknown]
